FAERS Safety Report 6516747-7 (Version None)
Quarter: 2009Q4

REPORT INFORMATION
  Report Type: 
  Country: None (occurrence: None)
  Receive Date: 20091223
  Receipt Date: 20091214
  Transmission Date: 20100525
  Serious: Yes (Hospitalization)
  Sender: FDA-Public Use
  Company Number: SE-JNJFOC-20090603395

PATIENT
  Age: 33 Year
  Sex: Female

DRUGS (4)
  1. IPREN 400 MG [Suspect]
     Indication: HEADACHE
     Dosage: 400 MG 2 OR 3 TIMES
     Route: 048
  2. VITAMINERAL [Suspect]
     Indication: MEDICAL DIET
     Route: 048
  3. ALVEDON [Concomitant]
  4. SILICON [Concomitant]

REACTIONS (3)
  - DRUG EXPOSURE DURING PREGNANCY [None]
  - RETAINED PLACENTA OR MEMBRANES [None]
  - UTERINE ATONY [None]
